FAERS Safety Report 18805781 (Version 1)
Quarter: 2021Q1

REPORT INFORMATION
  Report Type: Spontaneous
  Country: US (occurrence: US)
  Receive Date: 20210129
  Receipt Date: 20210129
  Transmission Date: 20210419
  Serious: No
  Sender: FDA-Public Use
  Company Number: US-ALVOGEN-2020-ALVOGEN-115465

PATIENT
  Sex: Female

DRUGS (1)
  1. LISINOPRIL. [Suspect]
     Active Substance: LISINOPRIL
     Indication: PRODUCT USED FOR UNKNOWN INDICATION
     Dosage: 20?25 MILLIGRAMS
     Route: 048

REACTIONS (4)
  - Swollen tongue [Unknown]
  - Drug hypersensitivity [Unknown]
  - Pharyngeal swelling [Unknown]
  - Product impurity [Unknown]
